FAERS Safety Report 24529033 (Version 1)
Quarter: 2024Q4

REPORT INFORMATION
  Report Type: Spontaneous
  Country: US (occurrence: None)
  Receive Date: 20241019
  Receipt Date: 20241019
  Transmission Date: 20250114
  Serious: No
  Sender: Public
  Company Number: None

PATIENT
  Age: 76 Day
  Sex: Male
  Weight: 68.4 kg

DRUGS (6)
  1. EZETIMIBE [Suspect]
     Active Substance: EZETIMIBE
     Indication: Blood cholesterol
     Dosage: OTHER QUANTITY : 1 TABLET(S);?FREQUENCY : DAILY;?
     Route: 048
     Dates: start: 20240714, end: 20241018
  2. METFORMIN [Concomitant]
     Active Substance: METFORMIN HYDROCHLORIDE
  3. LISINOPRIL [Concomitant]
     Active Substance: LISINOPRIL
  4. NIACIN [Concomitant]
     Active Substance: NIACIN
  5. ASPIRIN [Concomitant]
     Active Substance: ASPIRIN
  6. resvaratrol [Concomitant]

REACTIONS (4)
  - Muscle spasms [None]
  - Rash pruritic [None]
  - Rash [None]
  - Rash [None]

NARRATIVE: CASE EVENT DATE: 20241018
